FAERS Safety Report 12249945 (Version 1)
Quarter: 2016Q2

REPORT INFORMATION
  Report Type: Spontaneous
  Country: FR (occurrence: FR)
  Receive Date: 20160408
  Receipt Date: 20160408
  Transmission Date: 20160815
  Serious: Yes (Other)
  Sender: FDA-Public Use
  Company Number: FR-JNJFOC-20160405776

PATIENT
  Age: 28 Year

DRUGS (1)
  1. INFLIXIMAB, RECOMBINANT [Suspect]
     Active Substance: INFLIXIMAB
     Indication: BEHCET^S SYNDROME
     Route: 042

REACTIONS (4)
  - Off label use [Unknown]
  - Disseminated tuberculosis [Unknown]
  - Product use issue [Unknown]
  - Immune reconstitution inflammatory syndrome [Recovered/Resolved]
